FAERS Safety Report 25552230 (Version 1)
Quarter: 2025Q3

REPORT INFORMATION
  Report Type: Spontaneous
  Country: JP (occurrence: JP)
  Receive Date: 20250715
  Receipt Date: 20250715
  Transmission Date: 20251021
  Serious: Yes (Life-Threatening, Hospitalization, Other)
  Sender: BRISTOL-MYERS SQUIBB COMPANY
  Company Number: JP-BRISTOL-MYERS SQUIBB COMPANY-2025-096080

PATIENT
  Age: 6 Decade

DRUGS (2)
  1. NELVUTAMIG [Suspect]
     Active Substance: NELVUTAMIG
     Indication: Pleural mesothelioma
  2. NIVOLUMAB [Suspect]
     Active Substance: NIVOLUMAB
     Indication: Pleural mesothelioma

REACTIONS (3)
  - Cytokine release syndrome [Unknown]
  - Renal failure [Unknown]
  - Haemophagocytic lymphohistiocytosis [Unknown]
